FAERS Safety Report 6217548-X (Version None)
Quarter: 2009Q2

REPORT INFORMATION
  Report Type: 
  Country: None (occurrence: None)
  Receive Date: 20090608
  Receipt Date: 20090201
  Transmission Date: 20091009
  Serious: No
  Sender: FDA-Public Use
  Company Number: A0767239A

PATIENT
  Age: 57 Year
  Sex: Female

DRUGS (1)
  1. BUPROPION HCL [Suspect]
     Dosage: 150MG TWICE PER DAY

REACTIONS (1)
  - DRUG INEFFECTIVE [None]
